FAERS Safety Report 5124674-5 (Version None)
Quarter: 2006Q4

REPORT INFORMATION
  Report Type: 
  Country: None (occurrence: None)
  Receive Date: 20061011
  Receipt Date: 20060928
  Transmission Date: 20070319
  Serious: Yes (Death)
  Sender: FDA-Public Use
  Company Number: HQWYE377629SEP06

PATIENT
  Age: 40 Year
  Sex: Female

DRUGS (2)
  1. ENBREL [Suspect]
     Indication: RHEUMATOID ARTHRITIS
     Route: 058
     Dates: start: 20060401, end: 20060521
  2. METHOTREXATE [Suspect]
     Indication: RHEUMATOID ARTHRITIS
     Route: 048
     Dates: end: 20060521

REACTIONS (7)
  - ABDOMINAL PAIN [None]
  - CARDIAC DISORDER [None]
  - COMA [None]
  - HYPERHIDROSIS [None]
  - PNEUMOCOCCAL SEPSIS [None]
  - RESPIRATORY DISORDER [None]
  - TACHYCARDIA [None]
